FAERS Safety Report 8167329-5 (Version None)
Quarter: 2012Q1

REPORT INFORMATION
  Report Type: 
  Country: None (occurrence: None)
  Receive Date: 20120103
  Receipt Date: 20111122
  Transmission Date: 20120608
  Serious: Yes (Hospitalization)
  Sender: FDA-Public Use
  Company Number: AE-2011-003890

PATIENT
  Age: 53 Year
  Sex: Female
  Weight: 59.4212 kg

DRUGS (3)
  1. PEGINTERFERON (PEGINTERFERON ALFA-2A) [Concomitant]
  2. INCIVEK [Suspect]
     Dosage: 2250 MG (750 MG, 3 IN 1 D), ORAL
     Route: 048
     Dates: start: 20111017
  3. RIBAVIRIN [Concomitant]

REACTIONS (1)
  - PRURITUS GENERALISED [None]
